FAERS Safety Report 5078469-1 (Version None)
Quarter: 2006Q3

REPORT INFORMATION
  Report Type: 
  Country: None (occurrence: None)
  Receive Date: 20060811
  Receipt Date: 20060807
  Transmission Date: 20061208
  Serious: Yes (Life-Threatening, Other)
  Sender: FDA-Public Use
  Company Number: PHBS2006GB11868

PATIENT
  Age: 58 Year
  Sex: Male

DRUGS (5)
  1. POTASSIUM CHLORIDE [Suspect]
     Dosage: 5 MG, QID
  2. MAGNESIUM OXIDE [Concomitant]
     Dosage: 1.2 G, QID
  3. NAPROXEN [Concomitant]
     Dosage: 500 MG, BID
  4. SPIRONOLACTONE [Concomitant]
     Dosage: 125 MG/DAY
  5. THYROXINE [Concomitant]
     Dosage: 250 UG/DAY

REACTIONS (20)
  - BASE EXCESS DECREASED [None]
  - BLOOD BICARBONATE DECREASED [None]
  - BLOOD CREATININE INCREASED [None]
  - BLOOD MAGNESIUM INCREASED [None]
  - BLOOD PH DECREASED [None]
  - BLOOD SODIUM DECREASED [None]
  - BLOOD UREA INCREASED [None]
  - DEHYDRATION [None]
  - DIARRHOEA [None]
  - ELECTROCARDIOGRAM ABNORMAL [None]
  - ELECTROCARDIOGRAM QRS COMPLEX [None]
  - ELECTROCARDIOGRAM T WAVE PEAKED [None]
  - HYPERKALAEMIA [None]
  - MEDICATION RESIDUE [None]
  - METABOLIC ACIDOSIS [None]
  - MUSCULAR WEAKNESS [None]
  - PCO2 DECREASED [None]
  - PO2 INCREASED [None]
  - RENAL FAILURE ACUTE [None]
  - VOMITING [None]
